FAERS Safety Report 7284325-0 (Version None)
Quarter: 2011Q1

REPORT INFORMATION
  Report Type: 
  Country: None (occurrence: None)
  Receive Date: 20110209
  Receipt Date: 20110201
  Transmission Date: 20110831
  Serious: Yes (Hospitalization)
  Sender: FDA-Public Use
  Company Number: JP-CELGENEUS-087-21880-10121740

PATIENT
  Sex: Male
  Weight: 54.4 kg

DRUGS (11)
  1. REVLIMID [Suspect]
     Route: 048
     Dates: start: 20101113, end: 20101115
  2. SODIUM HYDROGEN CARBONATE [Concomitant]
     Indication: PROPHYLAXIS
     Route: 048
  3. MAGNESIUM OXIDE [Concomitant]
     Indication: CONSTIPATION
     Route: 048
  4. LENADEX [Suspect]
     Indication: MULTIPLE MYELOMA
     Route: 048
     Dates: start: 20101105, end: 20101109
  5. REVLIMID [Suspect]
     Indication: MULTIPLE MYELOMA
     Route: 048
     Dates: start: 20101105, end: 20101109
  6. BAKTAR [Concomitant]
     Indication: PROPHYLAXIS
     Route: 048
  7. LENADEX [Suspect]
     Route: 048
     Dates: start: 20101113, end: 20101116
  8. FLUCONAZOLE [Concomitant]
     Indication: PROPHYLAXIS
     Route: 048
  9. PARIET [Concomitant]
     Indication: PROPHYLAXIS
     Route: 048
  10. REVLIMID [Suspect]
     Route: 048
     Dates: start: 20101125, end: 20101126
  11. REBAMIPIDE [Concomitant]
     Indication: PROPHYLAXIS
     Route: 048

REACTIONS (3)
  - GASTRIC ULCER [None]
  - NEUTROPENIA [None]
  - THROMBOCYTOPENIA [None]
